FAERS Safety Report 9918301 (Version 1)
Quarter: 2014Q1

REPORT INFORMATION
  Report Type: Report from Study
  Country: CN (occurrence: CN)
  Receive Date: 20140224
  Receipt Date: 20140224
  Transmission Date: 20141002
  Serious: Yes (Hospitalization)
  Sender: FDA-Public Use
  Company Number: CN-ROCHE-1349086

PATIENT
  Age: 55 Year
  Sex: Female
  Weight: 55 kg

DRUGS (4)
  1. CELLCEPT [Suspect]
     Indication: RENAL TRANSPLANT
     Route: 048
     Dates: start: 20070126, end: 2007
  2. CELLCEPT [Suspect]
     Route: 048
     Dates: start: 2007
  3. SANDIMMUN NEORAL [Concomitant]
     Indication: RENAL TRANSPLANT
     Route: 048
     Dates: start: 20070126
  4. PREDNISONE [Concomitant]
     Indication: RENAL TRANSPLANT
     Route: 048
     Dates: start: 20070126

REACTIONS (7)
  - Gastrointestinal mucosal disorder [Recovering/Resolving]
  - Oedema mucosal [Recovering/Resolving]
  - Transplant rejection [Recovering/Resolving]
  - Nausea [Not Recovered/Not Resolved]
  - Vomiting [Not Recovered/Not Resolved]
  - Decreased appetite [Not Recovered/Not Resolved]
  - Flatulence [Not Recovered/Not Resolved]
